FAERS Safety Report 8403501-4 (Version None)
Quarter: 2012Q2

REPORT INFORMATION
  Report Type: 
  Country: None (occurrence: None)
  Receive Date: 20120601
  Receipt Date: 20120525
  Transmission Date: 20120825
  Serious: Yes (Hospitalization)
  Sender: FDA-Public Use
  Company Number: FR-PFIZER INC-2012091212

PATIENT
  Age: 62 Year
  Sex: Male
  Weight: 76 kg

DRUGS (12)
  1. DOXORUBICIN HCL [Suspect]
     Dosage: UNK
     Dates: start: 20120326
  2. TEMSIROLIMUS [Suspect]
     Dosage: 25 MG, CYCLIC
     Dates: start: 20120402, end: 20120410
  3. RITUXIMAB [Suspect]
     Indication: MANTLE CELL LYMPHOMA REFRACTORY
     Dosage: UNK
     Dates: start: 20120228
  4. PREDNISONE TAB [Suspect]
     Dosage: UNK
     Dates: start: 20120326
  5. VINCRISTINE SULFATE [Suspect]
     Indication: MANTLE CELL LYMPHOMA REFRACTORY
     Dosage: UNK
     Dates: start: 20120228
  6. DOXORUBICIN HCL [Suspect]
     Indication: MANTLE CELL LYMPHOMA REFRACTORY
     Dosage: UNK
     Dates: start: 20120228
  7. CYCLOPHOSPHAMIDE [Suspect]
     Dosage: UNK
     Dates: start: 20120326
  8. VINCRISTINE SULFATE [Suspect]
     Dosage: UNK
     Dates: start: 20120326
  9. TEMSIROLIMUS [Suspect]
     Indication: MANTLE CELL LYMPHOMA REFRACTORY
     Dosage: 25 MG; DAILY DOSE BEFORE SAE
     Dates: start: 20120228, end: 20120402
  10. PREDNISONE [Suspect]
     Indication: MANTLE CELL LYMPHOMA REFRACTORY
     Dosage: UNK
     Dates: start: 20120228
  11. RITUXIMAB [Suspect]
     Dosage: UNK
     Dates: start: 20120326
  12. CYCLOPHOSPHAMIDE [Suspect]
     Indication: MANTLE CELL LYMPHOMA REFRACTORY
     Dosage: UNK MG, UNK
     Dates: start: 20120228

REACTIONS (1)
  - PNEUMOCYSTIS JIROVECI PNEUMONIA [None]
